FAERS Safety Report 13942399 (Version 1)
Quarter: 2017Q3

REPORT INFORMATION
  Report Type: Spontaneous
  Country: US (occurrence: US)
  Receive Date: 20170906
  Receipt Date: 20170906
  Transmission Date: 20171127
  Serious: Yes (Hospitalization)
  Sender: FDA-Public Use
  Company Number: US-LEADIANT BIOSCIENCES INC-2017STPI000642

PATIENT
  Sex: Male

DRUGS (4)
  1. SPIRONOLACTONE. [Concomitant]
     Active Substance: SPIRONOLACTONE
  2. ESTRADIOL. [Concomitant]
     Active Substance: ESTRADIOL
  3. PREDNISONE. [Concomitant]
     Active Substance: PREDNISONE
  4. CYSTARAN [Suspect]
     Active Substance: CYSTEAMINE HYDROCHLORIDE
     Indication: CORNEAL DEPOSITS
     Dosage: 1 GTT, EVERY WAKING HOUR
     Route: 047
     Dates: start: 20151028

REACTIONS (1)
  - Cardiac disorder [Not Recovered/Not Resolved]
